FAERS Safety Report 21263459 (Version 1)
Quarter: 2022Q3

REPORT INFORMATION
  Report Type: Spontaneous
  Country: FR (occurrence: FR)
  Receive Date: 20220829
  Receipt Date: 20220829
  Transmission Date: 20221027
  Serious: Yes (Hospitalization, Other)
  Sender: FDA-Public Use
  Company Number: FR-AFSSAPS-CN20221625

PATIENT
  Age: 55 Year
  Sex: Male
  Weight: 100 kg

DRUGS (3)
  1. ELIQUIS [Suspect]
     Active Substance: APIXABAN
     Indication: Pulmonary embolism
     Dosage: 5 MG IN THE MORNING AND THE EVENING
     Route: 048
     Dates: start: 2021, end: 202208
  2. KARDEGIC [Suspect]
     Active Substance: ASPIRIN DL-LYSINE
     Indication: Vascular disorder prophylaxis
     Dosage: 0-1-0
     Route: 048
     Dates: start: 2016
  3. epileptic treatement [Concomitant]
     Indication: Epilepsy
     Route: 065

REACTIONS (1)
  - Haemothorax [Recovered/Resolved]

NARRATIVE: CASE EVENT DATE: 20220802
